FAERS Safety Report 17444665 (Version 1)
Quarter: 2020Q1

REPORT INFORMATION
  Report Type: Spontaneous
  Country: CA (occurrence: CA)
  Receive Date: 20200221
  Receipt Date: 20200221
  Transmission Date: 20200409
  Serious: Yes (Hospitalization)
  Sender: FDA-Public Use
  Company Number: CA-TEVA-2020-CA-1187098

PATIENT
  Age: 76 Year
  Sex: Female

DRUGS (8)
  1. METHYLPREDNISOLONE SODIUM SUCCINATE. [Suspect]
     Active Substance: METHYLPREDNISOLONE SODIUM SUCCINATE
     Indication: OPTIC ISCHAEMIC NEUROPATHY
     Dosage: 1000 MILLIGRAM DAILY;
     Route: 042
  2. PREDNISONE. [Suspect]
     Active Substance: PREDNISONE
     Route: 048
  3. PREDNISONE. [Suspect]
     Active Substance: PREDNISONE
     Indication: OPTIC ISCHAEMIC NEUROPATHY
     Route: 048
  4. PREDNISONE. [Suspect]
     Active Substance: PREDNISONE
     Indication: TEMPORAL ARTERITIS
     Route: 048
  5. PREDNISONE. [Suspect]
     Active Substance: PREDNISONE
     Route: 048
  6. METHYLPREDNISOLONE SODIUM SUCCINATE. [Suspect]
     Active Substance: METHYLPREDNISOLONE SODIUM SUCCINATE
     Indication: TEMPORAL ARTERITIS
     Dosage: 1000 MILLIGRAM DAILY;
     Route: 042
  7. METHYLPREDNISOLONE SODIUM SUCCINATE. [Suspect]
     Active Substance: METHYLPREDNISOLONE SODIUM SUCCINATE
     Route: 065
  8. METHYLPREDNISOLONE SODIUM SUCCINATE. [Suspect]
     Active Substance: METHYLPREDNISOLONE SODIUM SUCCINATE
     Route: 065

REACTIONS (5)
  - Vomiting [Unknown]
  - Diarrhoea [Unknown]
  - Off label use [Unknown]
  - Product use in unapproved indication [Unknown]
  - Asthenia [Unknown]
